FAERS Safety Report 4283531-7 (Version None)
Quarter: 2004Q1

REPORT INFORMATION
  Report Type: 
  Country: None (occurrence: None)
  Receive Date: 20040121
  Receipt Date: 20030404
  Transmission Date: 20041129
  Serious: Yes (Hospitalization)
  Sender: FDA-Public Use
  Company Number: A03200300730

PATIENT
  Sex: Male

DRUGS (2)
  1. PLAVIX [Suspect]
     Dosage: 75 MG QD ORAL
     Route: 048
     Dates: start: 20030403, end: 20030403
  2. HEPARIN-FRACTION, SODIUM SALT [Concomitant]

REACTIONS (1)
  - POST PROCEDURAL HAEMORRHAGE [None]
